FAERS Safety Report 6229893-2 (Version None)
Quarter: 2009Q2

REPORT INFORMATION
  Report Type: 
  Country: None (occurrence: None)
  Receive Date: 20090615
  Receipt Date: 20090602
  Transmission Date: 20091009
  Serious: Yes (Death, Hospitalization)
  Sender: FDA-Public Use
  Company Number: US-ELI_LILLY_AND_COMPANY-US200608000496

PATIENT
  Sex: Male
  Weight: 36.281 kg

DRUGS (8)
  1. ZYPREXA [Suspect]
     Indication: DEPRESSION
     Dosage: 5 MG, UNK
     Dates: start: 20040301, end: 20050826
  2. WELLBUTRIN [Concomitant]
     Indication: DEPRESSION
     Dosage: 150 MG, UNK
     Dates: start: 20040811
  3. PHENYTOIN [Concomitant]
  4. METHYLPHENIDATE HCL [Concomitant]
  5. NIMOTOP [Concomitant]
  6. NICOTINE BUCCAL [Concomitant]
     Dosage: 4 MG, 3/D
  7. GOSERELIN [Concomitant]
     Dosage: 10.8 MG, UNK
     Route: 058
     Dates: start: 20040811
  8. BICALUTAMIDE [Concomitant]
     Dosage: 50 MG, UNK
     Dates: start: 20040811

REACTIONS (5)
  - BLOOD CHOLESTEROL INCREASED [None]
  - DEATH [None]
  - DIABETES MELLITUS [None]
  - VISION BLURRED [None]
  - WEIGHT DECREASED [None]
